FAERS Safety Report 6903472-3 (Version None)
Quarter: 2010Q3

REPORT INFORMATION
  Report Type: 
  Country: None (occurrence: None)
  Receive Date: 20100803
  Receipt Date: 20081011
  Transmission Date: 20110219
  Serious: No
  Sender: FDA-Public Use
  Company Number: US-PFIZER INC-2008050573

PATIENT
  Sex: Female
  Weight: 109.1 kg

DRUGS (6)
  1. LYRICA [Suspect]
     Indication: NEURALGIA
     Dates: start: 20071016
  2. IBUPROFEN [Concomitant]
  3. HYDROCODONE BITARTRATE [Concomitant]
  4. CEPHALEXIN [Concomitant]
  5. PROVIGIL [Concomitant]
  6. MORPHINE [Concomitant]
     Route: 037

REACTIONS (5)
  - DIZZINESS [None]
  - HEADACHE [None]
  - NAUSEA [None]
  - OEDEMA PERIPHERAL [None]
  - VISION BLURRED [None]
